FAERS Safety Report 9037884 (Version 2)
Quarter: 2013Q1

REPORT INFORMATION
  Report Type: Spontaneous
  Country: BE (occurrence: BE)
  Receive Date: 20130129
  Receipt Date: 20130225
  Transmission Date: 20140127
  Serious: Yes (Hospitalization)
  Sender: FDA-Public Use
  Company Number: BE-JNJFOC-20130113425

PATIENT
  Age: 75 Year
  Sex: Female

DRUGS (2)
  1. XARELTO [Suspect]
     Indication: PRODUCT USED FOR UNKNOWN INDICATION
     Route: 048
     Dates: start: 20130106
  2. MARCOUMAR [Concomitant]
     Route: 065

REACTIONS (1)
  - Arterial thrombosis [Unknown]
